FAERS Safety Report 24825542 (Version 1)
Quarter: 2025Q1

REPORT INFORMATION
  Report Type: Spontaneous
  Country: CA (occurrence: CA)
  Receive Date: 20250109
  Receipt Date: 20250109
  Transmission Date: 20250409
  Serious: Yes (Life-Threatening)
  Sender: FRESENIUS KABI
  Company Number: CA-FreseniusKabi-FK202500279

PATIENT
  Age: 78 Year

DRUGS (1)
  1. PIPERACILLIN SODIUM\TAZOBACTAM SODIUM [Suspect]
     Active Substance: PIPERACILLIN SODIUM\TAZOBACTAM SODIUM
     Indication: Product used for unknown indication

REACTIONS (8)
  - Bilirubin conjugated increased [Unknown]
  - Blood bilirubin increased [Unknown]
  - Blood lactate dehydrogenase increased [Unknown]
  - Cold agglutinins positive [Unknown]
  - Cold type haemolytic anaemia [Unknown]
  - Coombs test positive [Unknown]
  - Haemoglobin decreased [Unknown]
  - Haptoglobin decreased [Unknown]
